FAERS Safety Report 6716431-0 (Version None)
Quarter: 2010Q2

REPORT INFORMATION
  Report Type: 
  Country: None (occurrence: None)
  Receive Date: 20100507
  Receipt Date: 20100429
  Transmission Date: 20101027
  Serious: Yes (Death, Hospitalization, Other)
  Sender: FDA-Public Use
  Company Number: CA-ROCHE-604684

PATIENT
  Sex: Female

DRUGS (3)
  1. PEGINTERFERON ALFA-2A [Suspect]
     Indication: HEPATITIS C
     Dosage: DOSAGE: 1 X WEEK
     Route: 058
     Dates: start: 20071030, end: 20071126
  2. PEGINTERFERON ALFA-2A [Suspect]
     Dosage: DOSE REDUCED
     Route: 058
     Dates: start: 20071126, end: 20080401
  3. RIBAVIRIN [Suspect]
     Indication: HEPATITIS C
     Route: 048
     Dates: start: 20071030, end: 20080401

REACTIONS (7)
  - APPENDICITIS [None]
  - CHOLECYSTITIS [None]
  - FALL [None]
  - HEPATIC ENZYME ABNORMAL [None]
  - HEPATIC NEOPLASM MALIGNANT [None]
  - PLATELET COUNT DECREASED [None]
  - UPPER LIMB FRACTURE [None]
